FAERS Safety Report 4861548-9 (Version None)
Quarter: 2005Q4

REPORT INFORMATION
  Report Type: 
  Country: None (occurrence: None)
  Receive Date: 20051220
  Receipt Date: 20051209
  Transmission Date: 20060501
  Serious: Yes (Other)
  Sender: FDA-Public Use
  Company Number: CA-BRISTOL-MYERS SQUIBB COMPANY-13218094

PATIENT
  Age: 82 Year
  Sex: Female

DRUGS (12)
  1. TEQUIN [Suspect]
     Route: 048
  2. ASPIRIN [Concomitant]
  3. CALCIUM GLUCONATE [Concomitant]
  4. CELEBREX [Concomitant]
  5. GLYBURIDE [Concomitant]
  6. HYDROCHLOROTHIAZIDE [Concomitant]
  7. LEVOTHYROXINE SODIUM [Concomitant]
  8. METFORMIN HCL [Concomitant]
  9. METOPROLOL [Concomitant]
  10. PENTOXIFYLLINE [Concomitant]
  11. RAMIPRIL [Concomitant]
  12. VITAMIN D [Concomitant]

REACTIONS (1)
  - HYPERGLYCAEMIA [None]
